FAERS Safety Report 10394169 (Version 1)
Quarter: 2014Q3

REPORT INFORMATION
  Report Type: Spontaneous
  Country: US (occurrence: None)
  Receive Date: 20140818
  Receipt Date: 20140818
  Transmission Date: 20150326
  Serious: Yes (Hospitalization, Other)
  Sender: FDA-Public Use
  Company Number: LH201400192

PATIENT
  Age: 0 Day
  Sex: Male

DRUGS (1)
  1. MAKENA [Suspect]
     Active Substance: HYDROXYPROGESTERONE CAPROATE
     Indication: EXPOSURE DURING PREGNANCY
     Dates: start: 20140611, end: 20140723

REACTIONS (3)
  - Premature baby [None]
  - Maternal drugs affecting foetus [None]
  - Hyperglycaemia [None]

NARRATIVE: CASE EVENT DATE: 20140804
